FAERS Safety Report 18875359 (Version 3)
Quarter: 2021Q1

REPORT INFORMATION
  Report Type: Report from Study
  Country: BR (occurrence: BR)
  Receive Date: 20210210
  Receipt Date: 20210319
  Transmission Date: 20210420
  Serious: Yes (Hospitalization, Other)
  Sender: FDA-Public Use
  Company Number: NVSC2021BR022677

PATIENT
  Age: 65 Year
  Sex: Female
  Weight: 58 kg

DRUGS (8)
  1. FULVESTRANT. [Suspect]
     Active Substance: FULVESTRANT
     Dosage: UNK, Q4W
     Route: 065
     Dates: start: 201911
  2. RIBOCICLIB. [Concomitant]
     Active Substance: RIBOCICLIB
     Dosage: 3 DF (PER DAY, 7 DAY?BREAK)
     Route: 065
     Dates: start: 20210104
  3. ZOMETA [Suspect]
     Active Substance: ZOLEDRONIC ACID
     Indication: METASTASIS
     Dosage: UNK, Q3MO
     Route: 065
     Dates: start: 201901
  4. FASLODEX [Concomitant]
     Active Substance: FULVESTRANT
     Indication: PRODUCT USED FOR UNKNOWN INDICATION
     Dosage: UNK
     Route: 065
  5. FLU VACCINE VII [Concomitant]
     Active Substance: INFLUENZA VIRUS VACCINE
     Indication: PRODUCT USED FOR UNKNOWN INDICATION
     Dosage: UNK
     Route: 065
     Dates: start: 2020
  6. FULVESTRANT. [Suspect]
     Active Substance: FULVESTRANT
     Indication: PRODUCT USED FOR UNKNOWN INDICATION
     Dosage: UNK
     Route: 065
     Dates: start: 201901
  7. ZOMETA [Suspect]
     Active Substance: ZOLEDRONIC ACID
     Dosage: UNK, Q3MO
     Route: 065
     Dates: start: 201911
  8. RIBOCICLIB. [Concomitant]
     Active Substance: RIBOCICLIB
     Indication: BREAST CANCER
     Dosage: 200 MG
     Route: 065

REACTIONS (27)
  - Feeding disorder [Unknown]
  - Illness [Unknown]
  - Oral herpes [Unknown]
  - Pain [Recovered/Resolved]
  - Hiatus hernia [Unknown]
  - Bursitis [Unknown]
  - Haemangioma [Unknown]
  - Eyelid disorder [Unknown]
  - Condition aggravated [Unknown]
  - Weight decreased [Unknown]
  - Aphthous ulcer [Unknown]
  - Rhinitis [Unknown]
  - Tumour marker abnormal [Unknown]
  - Discouragement [Unknown]
  - Gait disturbance [Unknown]
  - Tumour marker increased [Unknown]
  - Sinusitis [Unknown]
  - Rhinitis allergic [Unknown]
  - Loss of consciousness [Unknown]
  - Visual impairment [Unknown]
  - Drug intolerance [Unknown]
  - Alopecia [Unknown]
  - Neoplasm [Unknown]
  - Reflux gastritis [Unknown]
  - Swelling of eyelid [Unknown]
  - Eyelid thickening [Recovered/Resolved]
  - Vision blurred [Unknown]

NARRATIVE: CASE EVENT DATE: 2019
